FAERS Safety Report 20742487 (Version 1)
Quarter: 2022Q2

REPORT INFORMATION
  Report Type: Spontaneous
  Country: US (occurrence: US)
  Receive Date: 20220424
  Receipt Date: 20220424
  Transmission Date: 20220721
  Serious: No
  Sender: FDA-Public Use
  Company Number: US-BRISTOL-MYERS SQUIBB COMPANY-2022-021744

PATIENT
  Age: 74 Year
  Sex: Female

DRUGS (1)
  1. REVLIMID [Suspect]
     Active Substance: LENALIDOMIDE
     Indication: Plasma cell myeloma
     Dosage: DOSE:- 10 MILLIGRAM, FREQ:- ^TAKE 1 CAPSULE BY MOUTH DAILY FOR 14 DAYS ON AND 7 DAYS OFF EVERY 21 DA
     Route: 048
     Dates: start: 20220221

REACTIONS (3)
  - Rash macular [Unknown]
  - Swelling face [Unknown]
  - Peripheral swelling [Unknown]
